FAERS Safety Report 11333548 (Version 2)
Quarter: 2015Q3

REPORT INFORMATION
  Report Type: Spontaneous
  Country: IT (occurrence: IT)
  Receive Date: 20150803
  Receipt Date: 20150810
  Transmission Date: 20151125
  Serious: Yes (Other)
  Sender: FDA-Public Use
  Company Number: IT-PFIZER INC-2015252762

PATIENT
  Age: 64 Year
  Sex: Female

DRUGS (3)
  1. TANTUM VERDE [Suspect]
     Active Substance: BENZYDAMINE HYDROCHLORIDE
     Indication: OROPHARYNGEAL PAIN
     Dosage: 1 DF, DAILY
     Route: 055
     Dates: start: 20140910, end: 20140910
  2. AZITHROMYCIN [Suspect]
     Active Substance: AZITHROMYCIN ANHYDROUS
     Indication: OROPHARYNGEAL PAIN
     Dosage: 1 DF, DAILY
     Route: 048
     Dates: start: 20140910, end: 20140910
  3. PARACETAMOL [Suspect]
     Active Substance: ACETAMINOPHEN
     Indication: OROPHARYNGEAL PAIN
     Dosage: 1 DF, DAILY
     Route: 048
     Dates: start: 20140910, end: 20140910

REACTIONS (2)
  - Lip oedema [Recovering/Resolving]
  - Urticaria [Recovering/Resolving]

NARRATIVE: CASE EVENT DATE: 20140910
